FAERS Safety Report 7449221-4 (Version None)
Quarter: 2011Q2

REPORT INFORMATION
  Report Type: 
  Country: None (occurrence: None)
  Receive Date: 20110502
  Receipt Date: 20110421
  Transmission Date: 20111010
  Serious: Yes (Hospitalization)
  Sender: FDA-Public Use
  Company Number: US-BIOGENIDEC-2011BI015145

PATIENT
  Sex: Female

DRUGS (3)
  1. AVONEX [Suspect]
     Route: 030
     Dates: start: 20031001, end: 20090305
  2. AVONEX [Suspect]
     Indication: MULTIPLE SCLEROSIS
     Route: 030
     Dates: start: 20110314
  3. AVONEX [Suspect]
     Route: 030

REACTIONS (5)
  - PAIN [None]
  - OBESITY [None]
  - HYPERTENSION [None]
  - BLOOD GLUCOSE ABNORMAL [None]
  - INJECTION SITE DISCOMFORT [None]
